FAERS Safety Report 5324113-5 (Version None)
Quarter: 2007Q2

REPORT INFORMATION
  Report Type: 
  Country: None (occurrence: None)
  Receive Date: 20070514
  Receipt Date: 20060608
  Transmission Date: 20071010
  Serious: No
  Sender: FDA-Public Use
  Company Number: A0608368A

PATIENT
  Sex: Female

DRUGS (1)
  1. NABUMETONE [Suspect]
     Indication: OSTEOARTHRITIS
     Dosage: 750MG TWICE PER DAY
     Route: 048

REACTIONS (5)
  - DRUG INEFFECTIVE [None]
  - ERYTHEMA [None]
  - MUSCULAR WEAKNESS [None]
  - PAIN [None]
  - SWELLING [None]
